FAERS Safety Report 24183137 (Version 3)
Quarter: 2024Q3

REPORT INFORMATION
  Report Type: Spontaneous
  Country: TW (occurrence: TW)
  Receive Date: 20240807
  Receipt Date: 20240829
  Transmission Date: 20241016
  Serious: Yes (Hospitalization)
  Sender: BAYER
  Company Number: TW-BAYER-2024A110338

PATIENT
  Sex: Male

DRUGS (1)
  1. XOFIGO [Suspect]
     Active Substance: RADIUM RA-223 DICHLORIDE
     Dosage: 3 INJECTIONS IN TOTAL

REACTIONS (2)
  - Traumatic fracture [Recovering/Resolving]
  - Road traffic accident [None]

NARRATIVE: CASE EVENT DATE: 20240725
